FAERS Safety Report 5164144-1 (Version None)
Quarter: 2006Q4

REPORT INFORMATION
  Report Type: 
  Country: None (occurrence: None)
  Receive Date: 20061124
  Receipt Date: 20061110
  Transmission Date: 20070319
  Serious: Yes (Other)
  Sender: FDA-Public Use
  Company Number: US-2006-033590

PATIENT
  Age: 53 Year
  Sex: Female

DRUGS (7)
  1. BETASERON [Suspect]
     Indication: RELAPSING-REMITTING MULTIPLE SCLEROSIS
     Dosage: 8 MIU, EVERY 2D, SUBCUTANEOUS
     Route: 058
     Dates: start: 20020806
  2. BACLOFEN [Concomitant]
  3. DEPAKOTE [Concomitant]
  4. DITROPAN XL [Concomitant]
  5. ATENOLOL [Concomitant]
  6. SEROQUEL [Concomitant]
  7. EFFEXOR [Concomitant]

REACTIONS (6)
  - BALANCE DISORDER [None]
  - INDURATION [None]
  - INJECTION SITE ERYTHEMA [None]
  - OEDEMA PERIPHERAL [None]
  - SKIN DISCOLOURATION [None]
  - SKIN EXFOLIATION [None]
